FAERS Safety Report 24005957 (Version 2)
Quarter: 2024Q3

REPORT INFORMATION
  Report Type: Spontaneous
  Country: US (occurrence: US)
  Receive Date: 20240624
  Receipt Date: 20240721
  Transmission Date: 20241017
  Serious: Yes (Death, Other)
  Sender: BAXTER
  Company Number: US-BAXTER-2024BAX019719

PATIENT

DRUGS (6)
  1. NEXTERONE [Suspect]
     Active Substance: AMIODARONE HYDROCHLORIDE
     Dosage: CONCENTRATION WAS 360 MG/200 ML
     Route: 042
  2. DEXMEDETOMIDINE HYDROCHLORIDE [Suspect]
     Active Substance: DEXMEDETOMIDINE HYDROCHLORIDE
     Dosage: CONCENTRATION WAS 400 MCG/ML, PREMADE, 0.4 MCG/KG/HR
     Route: 042
  3. SODIUM CHLORIDE [Suspect]
     Active Substance: SODIUM CHLORIDE
     Dosage: 250 ML COMPOUDED IN KETAMINE
     Route: 042
  4. SODIUM CHLORIDE [Suspect]
     Active Substance: SODIUM CHLORIDE
     Dosage: 250 ML COMPOUNDED IN NOREPINEPHRINE
     Route: 065
     Dates: end: 20240319
  5. KETAMINE [Suspect]
     Active Substance: KETAMINE
     Dosage: CONCENTRATION 250 MG/NSS 250 ML, 2.5 MCG/KG/MIN.
     Route: 042
  6. NOREPINEPHRINE [Suspect]
     Active Substance: NOREPINEPHRINE\NOREPINEPHRINE BITARTRATE
     Dosage: CONCENTRATION 16 MG/250 ML, IT WAS COMPOUNDED WITH NSS, 0 ML/HR.
     Route: 042
     Dates: end: 20240319

REACTIONS (11)
  - Death [Fatal]
  - Cardiogenic shock [Unknown]
  - Ventricular tachycardia [Unknown]
  - Critical illness [Unknown]
  - Feeling abnormal [Unknown]
  - Device issue [Unknown]
  - Treatment delayed [Unknown]
  - Device alarm issue [Unknown]
  - Device electrical finding [Unknown]
  - Device physical property issue [Unknown]
  - Device power source issue [Unknown]

NARRATIVE: CASE EVENT DATE: 20240319
